FAERS Safety Report 4690233-1 (Version None)
Quarter: 2005Q2

REPORT INFORMATION
  Report Type: 
  Country: None (occurrence: None)
  Receive Date: 20050615
  Receipt Date: 20050520
  Transmission Date: 20051028
  Serious: Yes (Hospitalization)
  Sender: FDA-Public Use
  Company Number: JP-ROCHE-405746

PATIENT
  Age: 68 Year
  Sex: Female

DRUGS (3)
  1. PEGASYS [Suspect]
     Indication: HEPATITIS C
     Route: 058
     Dates: start: 20040716, end: 20050401
  2. URSODESOXYCHOLIC ACID [Concomitant]
     Route: 048
     Dates: start: 20031111, end: 20050416
  3. TOCOPHEROL CONCENTRATE CAP [Concomitant]
     Route: 048
     Dates: start: 20031111, end: 20050416

REACTIONS (6)
  - DRUG INEFFECTIVE [None]
  - INFLUENZA [None]
  - INTERSTITIAL LUNG DISEASE [None]
  - PLATELET COUNT DECREASED [None]
  - VIRAL INFECTION [None]
  - WHITE BLOOD CELL COUNT DECREASED [None]
